FAERS Safety Report 9522885 (Version 1)
Quarter: 2013Q3

REPORT INFORMATION
  Report Type: Spontaneous
  Country: CA (occurrence: None)
  Receive Date: 20130911
  Receipt Date: 20130911
  Transmission Date: 20140515
  Serious: Yes (Hospitalization)
  Sender: FDA-Public Use
  Company Number: AECAN201200523

PATIENT
  Age: 33 Year
  Sex: Female
  Weight: 85 kg

DRUGS (5)
  1. GAMUNEX (IMMUNE GLOBULIN IV (HUMAN), CAPRYLATE/CHROMATOGRAPHY PURIFIED) (10 PCT) [Suspect]
     Indication: MULTIPLE SCLEROSIS
     Route: 042
     Dates: start: 20121001, end: 20121003
  2. IGIVNEX [Suspect]
     Indication: MULTIPLE SCLEROSIS
     Route: 042
     Dates: start: 20121001, end: 20121003
  3. TYSABRI [Concomitant]
  4. EFFEXOR [Concomitant]
  5. SENOKOT [Concomitant]

REACTIONS (3)
  - Haemolytic anaemia [None]
  - Meningitis aseptic [None]
  - Infusion related reaction [None]
